FAERS Safety Report 8320727-9 (Version None)
Quarter: 2012Q2

REPORT INFORMATION
  Report Type: 
  Country: None (occurrence: None)
  Receive Date: 20120430
  Receipt Date: 20120418
  Transmission Date: 20120825
  Serious: Yes (Hospitalization, Disabling)
  Sender: FDA-Public Use
  Company Number: US-ELI_LILLY_AND_COMPANY-US201109006329

PATIENT
  Sex: Female

DRUGS (14)
  1. FORTEO [Suspect]
     Dosage: 20 UG, QD
  2. XANAX [Concomitant]
  3. LEVOTHYROXINE SODIUM [Concomitant]
  4. ROFLUMILAST [Concomitant]
  5. NEXIUM [Concomitant]
  6. LEVODOPA [Concomitant]
     Dosage: 100 MG, UNK
  7. ALBUTEROL [Concomitant]
  8. CARBIDOPA [Concomitant]
     Dosage: 25 MG, UNK
  9. LORTAB [Concomitant]
  10. PLAVIX [Concomitant]
  11. PAXIL [Concomitant]
  12. TRAZODONE HCL [Concomitant]
  13. FORTEO [Suspect]
     Indication: OSTEOPOROSIS
     Dosage: 20 UG, QD
     Dates: start: 20110801
  14. SIMVASTATIN [Concomitant]

REACTIONS (17)
  - DYSPNOEA [None]
  - MALAISE [None]
  - PAIN IN EXTREMITY [None]
  - CONTUSION [None]
  - DIZZINESS [None]
  - DRUG DISPENSING ERROR [None]
  - DEHYDRATION [None]
  - WEIGHT DECREASED [None]
  - DYSSTASIA [None]
  - INJECTION SITE HAEMATOMA [None]
  - BACK PAIN [None]
  - TREMOR [None]
  - BONE DISORDER [None]
  - SCRATCH [None]
  - PAIN [None]
  - FATIGUE [None]
  - FALL [None]
